FAERS Safety Report 10330909 (Version 2)
Quarter: 2014Q3

REPORT INFORMATION
  Report Type: Report from Study
  Country: CA (occurrence: CA)
  Receive Date: 20140722
  Receipt Date: 20140722
  Transmission Date: 20150326
  Serious: Yes (Death, Hospitalization)
  Sender: FDA-Public Use
  Company Number: PHHY2013CA139099

PATIENT
  Age: 78 Year
  Sex: Male

DRUGS (2)
  1. SANDOSTATIN LAR DEPOT [Suspect]
     Active Substance: OCTREOTIDE ACETATE
     Indication: SMALL INTESTINAL OBSTRUCTION
     Dosage: 20 MG, EVERY 4 WEEKS
     Route: 030
     Dates: start: 20131028, end: 20131223
  2. SANDOSTATIN LAR DEPOT [Suspect]
     Active Substance: OCTREOTIDE ACETATE
     Indication: METASTASES TO PERITONEUM
     Dosage: 20 MG, QMO/EVERY 4 WEEKS
     Route: 030
     Dates: start: 20140510, end: 20140510

REACTIONS (6)
  - Chills [Unknown]
  - Intestinal obstruction [Unknown]
  - Vomiting [Unknown]
  - Peripheral swelling [Recovering/Resolving]
  - Death [Fatal]
  - Disorientation [Unknown]

NARRATIVE: CASE EVENT DATE: 20131226
